FAERS Safety Report 19034506 (Version 1)
Quarter: 2021Q1

REPORT INFORMATION
  Report Type: Spontaneous
  Country: US (occurrence: US)
  Receive Date: 20210319
  Receipt Date: 20210319
  Transmission Date: 20210420
  Serious: Yes (Disabling, Other)
  Sender: FDA-Public Use
  Company Number: US-PURDUE-USA-2020-0226387

PATIENT
  Sex: Male

DRUGS (2)
  1. OXYCONTIN [Suspect]
     Active Substance: OXYCODONE HYDROCHLORIDE
     Indication: BACK PAIN
     Dosage: UNK
     Route: 048
  2. HYDROCODONE BITARTRATE AND ACETAMINOPHEN [Suspect]
     Active Substance: ACETAMINOPHEN\HYDROCODONE BITARTRATE
     Indication: PAIN
     Dosage: UNK
     Route: 048

REACTIONS (12)
  - Paraplegia [Unknown]
  - Anger [Unknown]
  - Anxiety [Unknown]
  - Paranoia [Unknown]
  - Spinal operation [Unknown]
  - Tendon rupture [Unknown]
  - Drug ineffective [Unknown]
  - Negative thoughts [Unknown]
  - Drug dependence [Unknown]
  - Depression [Unknown]
  - Fatigue [Unknown]
  - Confusional state [Unknown]
